FAERS Safety Report 14209521 (Version 1)
Quarter: 2017Q4

REPORT INFORMATION
  Report Type: Spontaneous
  Country: US (occurrence: US)
  Receive Date: 20171121
  Receipt Date: 20171121
  Transmission Date: 20180321
  Serious: No
  Sender: FDA-Public Use
  Company Number: US-JNJFOC-20170930593

PATIENT
  Sex: Female
  Weight: 110.86 kg

DRUGS (33)
  1. VITAMIN D3 [Concomitant]
     Active Substance: CHOLECALCIFEROL
     Dosage: 3 TABLETS
     Route: 048
  2. METFORMIN HCL [Concomitant]
     Active Substance: METFORMIN HYDROCHLORIDE
     Dosage: AT EVENING
     Route: 048
  3. COLACE [Concomitant]
     Active Substance: DOCUSATE SODIUM
     Route: 048
  4. TYLENOL [Concomitant]
     Active Substance: ACETAMINOPHEN
     Dosage: 2 TABLETS UP TO 6
     Route: 048
  5. PREMARIN [Concomitant]
     Active Substance: ESTROGENS, CONJUGATED
     Dosage: 0.625 MG/ 1GM
     Route: 067
  6. PANTOPRAZOLE [Concomitant]
     Active Substance: PANTOPRAZOLE
     Route: 048
  7. MOMETASONE FUROATE. [Concomitant]
     Active Substance: MOMETASONE FUROATE
     Indication: SKIN DISORDER
     Route: 061
  8. AMLACTIN [Concomitant]
     Active Substance: AMMONIUM LACTATE
     Indication: HYPERKERATOSIS
     Dosage: APPLY TO HANDS AND FEET
     Route: 061
  9. POTASSIUM CHLORIDE. [Concomitant]
     Active Substance: POTASSIUM CHLORIDE
     Route: 048
  10. HYDROCODONE/ACETAMINOPHEN [Concomitant]
     Active Substance: ACETAMINOPHEN\HYDROCODONE
     Indication: PAIN
     Dosage: 10MG/325 MG DAILY AS NEEDED
     Route: 048
  11. HYDROCHLOROTHIAZIDE AND LISINOPRIL [Concomitant]
     Active Substance: HYDROCHLOROTHIAZIDE\LISINOPRIL
     Dosage: 20 MG/25MG
     Route: 048
  12. LINZESS [Concomitant]
     Active Substance: LINACLOTIDE
     Indication: IRRITABLE BOWEL SYNDROME
     Dosage: 30 MINUTES BEFORE THE FIRST MEAL OF THE DAY OR AS DIRECTED
     Route: 048
  13. XARELTO [Suspect]
     Active Substance: RIVAROXABAN
     Indication: PULMONARY EMBOLISM
     Route: 048
     Dates: start: 20150705
  14. PROCTOSOL HC [Concomitant]
     Indication: HAEMORRHOIDS
     Route: 054
  15. MAGNESIUM CITRATE. [Concomitant]
     Active Substance: MAGNESIUM CITRATE
     Indication: CONSTIPATION
     Dosage: DRINK ONE TIME OVER 3-4 DAYS
     Route: 048
  16. DITROPAN XL [Concomitant]
     Active Substance: OXYBUTYNIN CHLORIDE
     Route: 048
  17. MIRALAX [Concomitant]
     Active Substance: POLYETHYLENE GLYCOL 3350
     Indication: CONSTIPATION
     Dosage: POWDER 17 GRAMS DISSOLVE IN 8 OUNCES OF WATER OR JUICE
     Route: 048
  18. ASPIRIN. [Concomitant]
     Active Substance: ASPIRIN
     Route: 048
  19. ESTRADIOL. [Concomitant]
     Active Substance: ESTRADIOL
     Dosage: EVERY EVENING
     Route: 067
  20. HYDROXYZINE HCL [Concomitant]
     Active Substance: HYDROXYZINE HYDROCHLORIDE
     Indication: ANXIETY
     Dosage: AS NEEDED
     Route: 048
  21. BACLOFEN. [Concomitant]
     Active Substance: BACLOFEN
     Indication: MUSCLE SPASMS
     Route: 048
  22. LASIX [Concomitant]
     Active Substance: FUROSEMIDE
     Indication: OEDEMA PERIPHERAL
     Dosage: TWO TABLETS DAILY
     Route: 048
  23. SPIRONOLACTONE. [Concomitant]
     Active Substance: SPIRONOLACTONE
     Dosage: HALF TABLET, STRENGTH 25 MG
     Route: 048
  24. PAROXETINE HCL [Concomitant]
     Active Substance: PAROXETINE HYDROCHLORIDE
     Dosage: TWO AND HALF TABLETS
     Route: 048
  25. MELATONIN [Concomitant]
     Active Substance: MELATONIN
     Dosage: USE REGULARLY
     Route: 065
  26. LINZESS [Concomitant]
     Active Substance: LINACLOTIDE
     Indication: CONSTIPATION
     Dosage: 30 MINUTES BEFORE THE FIRST MEAL OF THE DAY OR AS DIRECTED
     Route: 048
  27. PRAVASTATIN. [Concomitant]
     Active Substance: PRAVASTATIN
     Route: 048
  28. ROPINIROLE HCL [Concomitant]
     Active Substance: ROPINIROLE HYDROCHLORIDE
     Dosage: 20 MG/25MG
     Route: 048
  29. TRAZODONE HYDROCHLORIDE. [Concomitant]
     Active Substance: TRAZODONE HYDROCHLORIDE
     Route: 048
  30. OXYGEN. [Concomitant]
     Active Substance: OXYGEN
     Dosage: CONTINUOUS 2LPM
     Route: 065
  31. HYDROXYZINE HCL [Concomitant]
     Active Substance: HYDROXYZINE HYDROCHLORIDE
     Indication: RESTLESSNESS
     Dosage: AS NEEDED
     Route: 048
  32. LACTOBACILLUS ACIDOPHILUS [Concomitant]
     Active Substance: LACTOBACILLUS ACIDOPHILUS
     Route: 048
  33. CALCIUM [Concomitant]
     Active Substance: CALCIUM
     Route: 048

REACTIONS (4)
  - Abdominal pain [Unknown]
  - Abdominal mass [Unknown]
  - Abdominal distension [Unknown]
  - Constipation [Recovered/Resolved]

NARRATIVE: CASE EVENT DATE: 2016
